FAERS Safety Report 6223876-4 (Version None)
Quarter: 2009Q2

REPORT INFORMATION
  Report Type: 
  Country: None (occurrence: None)
  Receive Date: 20090611
  Receipt Date: 20090302
  Transmission Date: 20091009
  Serious: No
  Sender: FDA-Public Use
  Company Number: US-ABBOTT-09P-163-0560480-00

PATIENT
  Sex: Female
  Weight: 77.634 kg

DRUGS (14)
  1. HUMIRA [Suspect]
     Indication: BEHCET'S SYNDROME
     Route: 058
     Dates: start: 20090101
  2. CEREFOLIN (FOLIC ACID PLUS B 12) [Concomitant]
     Indication: BLOOD HOMOCYSTEINE INCREASED
     Dosage: UNKNOWN
     Route: 048
  3. COLCHICINE [Concomitant]
     Indication: ARTHRITIS
     Route: 048
  4. MERIPEX [Concomitant]
     Indication: RESTLESS LEGS SYNDROME
  5. BENAZEPRIL HYDROCHLORIDE [Concomitant]
     Indication: HYPERTENSION
     Route: 048
  6. NEURONTIN [Concomitant]
     Indication: BEHCET'S SYNDROME
     Route: 048
  7. ZETIA [Concomitant]
     Indication: BLOOD CHOLESTEROL INCREASED
     Dosage: UNKNOWN
  8. PROTONIX [Concomitant]
     Indication: GASTROOESOPHAGEAL REFLUX DISEASE
     Route: 048
  9. LEXAPRO [Concomitant]
     Indication: FIBROMYALGIA
     Route: 048
  10. NIASPAN [Concomitant]
     Indication: BLOOD CHOLESTEROL INCREASED
     Route: 048
  11. ASPIRIN [Concomitant]
     Indication: CARDIOVASCULAR EVENT PROPHYLAXIS
  12. MELOXICAM [Concomitant]
     Indication: BEHCET'S SYNDROME
     Route: 048
  13. FISH OIL [Concomitant]
     Indication: MEDICAL DIET
     Route: 048
  14. CALCIUM + VITAMIN D [Concomitant]
     Indication: MINERAL SUPPLEMENTATION
     Dosage: UNKNOWN
     Route: 048

REACTIONS (1)
  - BEHCET'S SYNDROME [None]
